FAERS Safety Report 14649328 (Version 1)
Quarter: 2018Q1

REPORT INFORMATION
  Report Type: Spontaneous
  Country: FR (occurrence: FR)
  Receive Date: 20180316
  Receipt Date: 20180316
  Transmission Date: 20180509
  Serious: Yes (Life-Threatening, Hospitalization)
  Sender: FDA-Public Use
  Company Number: FR-SA-2018SA071359

PATIENT
  Age: 71 Year
  Sex: Male
  Weight: 72 kg

DRUGS (4)
  1. LOVENOX [Suspect]
     Active Substance: ENOXAPARIN SODIUM
     Indication: THROMBOSIS PROPHYLAXIS
     Route: 058
     Dates: start: 20171205, end: 20171225
  2. ALDACTONE [Concomitant]
     Active Substance: SPIRONOLACTONE
     Route: 048
  3. RAMIPRIL. [Concomitant]
     Active Substance: RAMIPRIL
     Route: 048
  4. FUROSEMIDE. [Concomitant]
     Active Substance: FUROSEMIDE
     Route: 048

REACTIONS (3)
  - Hyperkalaemia [Recovered/Resolved]
  - Shock haemorrhagic [Recovered/Resolved]
  - Spontaneous haematoma [Recovered/Resolved]

NARRATIVE: CASE EVENT DATE: 20171223
